FAERS Safety Report 14991551 (Version 1)
Quarter: 2018Q2

REPORT INFORMATION
  Report Type: Spontaneous
  Country: IT (occurrence: IT)
  Receive Date: 20180608
  Receipt Date: 20180608
  Transmission Date: 20180711
  Serious: Yes (Other)
  Sender: FDA-Public Use
  Company Number: IT-FRESENIUS KABI-FK201806621

PATIENT
  Age: 66 Year
  Sex: Female

DRUGS (3)
  1. CYTARABINE (MANUFACTURER UNKNOWN) [Suspect]
     Active Substance: CYTARABINE
     Indication: ACUTE MYELOID LEUKAEMIA
     Route: 065
     Dates: start: 201204, end: 201205
  2. CYTARABINE (MANUFACTURER UNKNOWN) [Suspect]
     Active Substance: CYTARABINE
     Route: 065
     Dates: start: 201206
  3. CYTARABINE (MANUFACTURER UNKNOWN) [Suspect]
     Active Substance: CYTARABINE
     Dosage: REDUCED DOSE
     Route: 065

REACTIONS (1)
  - Type IV hypersensitivity reaction [Recovered/Resolved]
